FAERS Safety Report 12177474 (Version 4)
Quarter: 2016Q3

REPORT INFORMATION
  Report Type: Spontaneous
  Country: US (occurrence: US)
  Receive Date: 20160314
  Receipt Date: 20160802
  Transmission Date: 20161109
  Serious: Yes (Other)
  Sender: FDA-Public Use
  Company Number: US-TEVA-642172USA

PATIENT
  Age: 57 Year
  Sex: Female

DRUGS (1)
  1. ZECUITY [Suspect]
     Active Substance: SUMATRIPTAN SUCCINATE
     Indication: MIGRAINE
     Dosage: 6.5 MG / 4 HOURS
     Route: 062
     Dates: start: 20160208, end: 20160208

REACTIONS (10)
  - Application site burn [Recovered/Resolved with Sequelae]
  - Application site urticaria [Recovered/Resolved]
  - Application site pruritus [Recovered/Resolved]
  - Device use error [Unknown]
  - Application site dryness [Recovering/Resolving]
  - Application site infection [Recovered/Resolved]
  - Application site erythema [Recovered/Resolved]
  - Application site discolouration [Recovering/Resolving]
  - Application site vesicles [Recovered/Resolved]
  - Application site scar [Not Recovered/Not Resolved]

NARRATIVE: CASE EVENT DATE: 20160208
